FAERS Safety Report 9186012 (Version 2)
Quarter: 2013Q1

REPORT INFORMATION
  Report Type: Spontaneous
  Country: US (occurrence: US)
  Receive Date: 20130325
  Receipt Date: 20130328
  Transmission Date: 20140127
  Serious: No
  Sender: FDA-Public Use
  Company Number: US-ASTRAZENECA-2013SE16500

PATIENT
  Age: 50 Year
  Sex: Female
  Weight: 97.1 kg

DRUGS (21)
  1. NEXIUM [Suspect]
     Indication: GASTROOESOPHAGEAL REFLUX DISEASE
     Route: 048
     Dates: start: 2009
  2. NEXIUM [Suspect]
     Indication: GASTROOESOPHAGEAL REFLUX DISEASE
     Route: 048
     Dates: start: 2011
  3. XANAX [Concomitant]
     Indication: ANXIETY
     Route: 048
     Dates: start: 201212
  4. XANAX [Concomitant]
     Indication: STRESS
     Route: 048
     Dates: start: 201212
  5. WELLBUTRIN [Concomitant]
     Indication: DEPRESSION
     Route: 048
     Dates: start: 2000
  6. CARVEDIOL [Concomitant]
     Indication: HYPERTENSION
     Route: 048
     Dates: start: 20120420
  7. LEVOTHYROXINE [Concomitant]
     Indication: THYROID DISORDER
     Route: 048
  8. ESTRADIOL [Concomitant]
     Indication: BLOOD OESTROGEN ABNORMAL
     Route: 048
     Dates: start: 2012
  9. PREVONA [Concomitant]
     Indication: BLOOD OESTROGEN ABNORMAL
     Route: 048
     Dates: start: 2012
  10. CELEBREX [Concomitant]
     Indication: ARTHRITIS
     Route: 048
     Dates: start: 2000
  11. METHOTREXATE [Concomitant]
     Indication: ARTHRITIS
     Route: 048
     Dates: start: 2000
  12. EMBREL [Concomitant]
     Indication: ARTHRITIS
     Dosage: 25MG
     Route: 048
     Dates: start: 2002
  13. TRAMADOL [Concomitant]
     Indication: ARTHRITIS
     Route: 048
     Dates: start: 2000
  14. TRAZADONE [Concomitant]
     Indication: SLEEP DISORDER
     Route: 048
     Dates: start: 2000
  15. ZOFRAN [Concomitant]
     Indication: NAUSEA
     Route: 048
     Dates: start: 2010
  16. REGLAN [Concomitant]
     Indication: NAUSEA
     Route: 048
     Dates: start: 2010
  17. PHENERGAN [Concomitant]
     Indication: NAUSEA
     Route: 048
     Dates: start: 2010
  18. MVI [Concomitant]
     Indication: ARTHRITIS
     Dosage: BID
     Route: 048
     Dates: start: 2000
  19. JOINT MAINTENANCE [Concomitant]
     Indication: ARTHRITIS
     Route: 048
     Dates: start: 2000
  20. PROBIOTIC [Concomitant]
     Indication: ABDOMINAL DISCOMFORT
     Dosage: DAILY
     Route: 048
     Dates: start: 2011
  21. FOLIC ACID [Concomitant]
     Indication: MOUTH ULCERATION
     Route: 048
     Dates: start: 2000

REACTIONS (16)
  - Stress [Unknown]
  - Gallbladder disorder [Unknown]
  - Gastrooesophageal reflux disease [Unknown]
  - Menopause [Unknown]
  - Hot flush [Unknown]
  - Hypertension [Unknown]
  - Oesophagitis [Unknown]
  - Hiatus hernia [Unknown]
  - Pain [Unknown]
  - Anxiety [Unknown]
  - Dyspepsia [Unknown]
  - Diarrhoea [Unknown]
  - Nausea [Unknown]
  - Drug ineffective [Unknown]
  - Off label use [Unknown]
  - Intentional drug misuse [Unknown]
